FAERS Safety Report 15681436 (Version 1)
Quarter: 2018Q4

REPORT INFORMATION
  Report Type: Spontaneous
  Country: US (occurrence: US)
  Receive Date: 20181120
  Receipt Date: 20181120
  Transmission Date: 20190205
  Serious: No
  Sender: FDA-Public Use
  Company Number: None

PATIENT

DRUGS (1)
  1. APREPITANT. [Suspect]
     Active Substance: APREPITANT

REACTIONS (5)
  - Hypersensitivity [None]
  - Wheezing [None]
  - Eye swelling [None]
  - Pruritus [None]
  - Dyspnoea [None]
